FAERS Safety Report 4731305-2 (Version None)
Quarter: 2005Q3

REPORT INFORMATION
  Report Type: 
  Country: None (occurrence: None)
  Receive Date: 20050802
  Receipt Date: 20050722
  Transmission Date: 20060218
  Serious: Yes (Hospitalization)
  Sender: FDA-Public Use
  Company Number: DEWYE803106JUL05

PATIENT
  Sex: Male
  Weight: 82 kg

DRUGS (5)
  1. ENBREL [Suspect]
     Indication: RHEUMATOID ARTHRITIS
     Dosage: ONE INJECTION
     Route: 058
     Dates: end: 20050301
  2. METHOTREXATE [Concomitant]
     Indication: ALLERGIC GRANULOMATOUS ANGIITIS
     Route: 030
     Dates: start: 19980301
  3. DECORTIN [Concomitant]
     Indication: ALLERGIC GRANULOMATOUS ANGIITIS
     Dosage: 10 MG
     Route: 048
     Dates: start: 19980301
  4. APONAL [Concomitant]
     Indication: SEDATION
     Dosage: 10 MG
     Route: 048
     Dates: start: 20041001, end: 20050701
  5. NEURONTIN [Concomitant]
     Indication: ALLERGIC GRANULOMATOUS ANGIITIS
     Dosage: 800 MG
     Route: 048
     Dates: start: 19980301

REACTIONS (1)
  - PULMONARY OEDEMA [None]
